FAERS Safety Report 21279656 (Version 1)
Quarter: 2022Q3

REPORT INFORMATION
  Report Type: Spontaneous
  Country: US (occurrence: None)
  Receive Date: 20220831
  Receipt Date: 20220831
  Transmission Date: 20221027
  Serious: No
  Sender: FDA-Public Use
  Company Number: None

PATIENT
  Age: 47 Year
  Sex: Female

DRUGS (1)
  1. HUMIRA [Suspect]
     Active Substance: ADALIMUMAB
     Indication: Ankylosing spondylitis
     Dosage: FREQUENCY : EVERY OTHER WEEK?
     Route: 058
     Dates: start: 20210909

REACTIONS (4)
  - Device defective [None]
  - Device leakage [None]
  - Device malfunction [None]
  - Therapy interrupted [None]

NARRATIVE: CASE EVENT DATE: 20220829
